FAERS Safety Report 12077933 (Version 1)
Quarter: 2016Q1

REPORT INFORMATION
  Report Type: Spontaneous
  Country: IT (occurrence: IT)
  Receive Date: 20160215
  Receipt Date: 20160215
  Transmission Date: 20160526
  Serious: Yes (Other)
  Sender: FDA-Public Use
  Company Number: IT-BAYER-2016-028483

PATIENT
  Age: 79 Year
  Sex: Male

DRUGS (9)
  1. STALEVO [Concomitant]
     Active Substance: CARBIDOPA\ENTACAPONE\LEVODOPA
     Route: 048
  2. JUMEX [Concomitant]
     Active Substance: SELEGILINE HYDROCHLORIDE
     Route: 048
  3. PRAMIPEXOLE. [Concomitant]
     Active Substance: PRAMIPEXOLE
     Route: 048
  4. CARBIDOPA. [Concomitant]
     Active Substance: CARBIDOPA
     Route: 048
  5. APIXABAN [Suspect]
     Active Substance: APIXABAN
     Indication: THROMBOSIS PROPHYLAXIS
     Dosage: DAILY DOSE 1 DF
     Route: 048
     Dates: start: 20150101, end: 20160111
  6. AMIODARONE HYDROCHLORIDE. [Concomitant]
     Active Substance: AMIODARONE HYDROCHLORIDE
     Route: 048
  7. ACETYLSALICYLIC ACID({=100 MG) [Suspect]
     Active Substance: ASPIRIN
     Indication: THROMBOSIS PROPHYLAXIS
     Dosage: UNK
     Route: 048
  8. ACETYLSALICYLIC ACID({=100 MG) [Suspect]
     Active Substance: ASPIRIN
     Indication: THROMBOSIS PROPHYLAXIS
     Dosage: DAILY DOSE 1 DF
     Route: 048
     Dates: start: 20150101, end: 20160111
  9. FINASTERIDE. [Concomitant]
     Active Substance: FINASTERIDE
     Route: 048

REACTIONS (1)
  - Anaemia [Recovering/Resolving]

NARRATIVE: CASE EVENT DATE: 20160111
